FAERS Safety Report 5774947-8 (Version None)
Quarter: 2008Q2

REPORT INFORMATION
  Report Type: 
  Country: None (occurrence: None)
  Receive Date: 20080617
  Receipt Date: 20080606
  Transmission Date: 20081010
  Serious: Yes (Other)
  Sender: FDA-Public Use
  Company Number: US-BAYER-200812340BCC

PATIENT
  Age: 76 Year
  Sex: Female
  Weight: 52 kg

DRUGS (5)
  1. PHILLIPS MILK OF MAGNESIA ORIGINAL [Suspect]
     Indication: CONSTIPATION
     Dosage: TOTAL DAILY DOSE: 60 ML  UNIT DOSE: 30 ML
     Route: 048
  2. PHILLIPS MILK OF MAGNESIA CHERRY [Suspect]
     Indication: CONSTIPATION PROPHYLAXIS
     Dosage: TOTAL DAILY DOSE: 60 ML  UNIT DOSE: 30 ML
     Route: 048
  3. COZAAR [Concomitant]
  4. LIPITOR [Concomitant]
  5. PRILOSEC [Concomitant]

REACTIONS (1)
  - DIABETES MELLITUS [None]
